FAERS Safety Report 5382389-2 (Version None)
Quarter: 2007Q3

REPORT INFORMATION
  Report Type: 
  Country: None (occurrence: None)
  Receive Date: 20070709
  Receipt Date: 20070704
  Transmission Date: 20080115
  Serious: Yes (Death)
  Sender: FDA-Public Use
  Company Number: GB-MERCK-0707GBR00028

PATIENT
  Age: 80 Year
  Sex: Female
  Weight: 75 kg

DRUGS (6)
  1. ZOCOR [Suspect]
     Indication: RENAL FAILURE CHRONIC
     Route: 048
     Dates: start: 20070419, end: 20070524
  2. CALCIUM CARBONATE AND CHOLECALCIFEROL [Concomitant]
     Indication: OSTEOPOROSIS
     Route: 048
     Dates: start: 20061114
  3. FOSAMAX [Concomitant]
     Indication: OSTEOPOROSIS
     Route: 048
     Dates: start: 20020212
  4. AMITRIPTYLINE HYDROCHLORIDE [Concomitant]
     Indication: PAIN IN EXTREMITY
     Route: 048
     Dates: start: 20070109
  5. ACETAMINOPHEN AND CODEINE PHOSPHATE [Concomitant]
     Indication: BACK PAIN
     Route: 065
     Dates: start: 20000712
  6. OMEPRAZOLE [Concomitant]
     Indication: OESOPHAGITIS
     Route: 065
     Dates: start: 19980101

REACTIONS (1)
  - ACUTE MYOCARDIAL INFARCTION [None]
